FAERS Safety Report 4488936-7 (Version None)
Quarter: 2004Q3

REPORT INFORMATION
  Report Type: 
  Country: None (occurrence: None)
  Receive Date: 20040921
  Receipt Date: 20040412
  Transmission Date: 20050211
  Serious: Yes (Hospitalization)
  Sender: FDA-Public Use
  Company Number: 163-20785-04040312

PATIENT
  Age: 73 Year
  Sex: Male

DRUGS (9)
  1. THALOMID [Suspect]
     Indication: PROSTATE CANCER
     Dosage: 2000 MG, QHS, ORAL
     Route: 048
     Dates: start: 20040309
  2. POTASSIUM (POTASSIUM) [Concomitant]
  3. PERCOCET [Concomitant]
  4. QUININE (QUININE) [Concomitant]
  5. DILANTIN [Concomitant]
  6. COZAAR [Concomitant]
  7. NORVASC [Concomitant]
  8. ADVAIR (SERETIDE MITE) [Concomitant]
  9. ASPIRIN [Concomitant]

REACTIONS (5)
  - DYSPNOEA [None]
  - FATIGUE [None]
  - OEDEMA PERIPHERAL [None]
  - RED BLOOD CELL COUNT DECREASED [None]
  - WHITE BLOOD CELL COUNT DECREASED [None]
